FAERS Safety Report 4519378-3 (Version None)
Quarter: 2004Q4

REPORT INFORMATION
  Report Type: 
  Country: None (occurrence: None)
  Receive Date: 20041202
  Receipt Date: 20041118
  Transmission Date: 20050328
  Serious: Yes (Disabling)
  Sender: FDA-Public Use
  Company Number: SGBI-2004-00423

PATIENT
  Age: 73 Year
  Sex: Female
  Weight: 61.5 kg

DRUGS (1)
  1. ANAGRELIDE HCL [Suspect]
     Indication: ESSENTIAL THROMBOCYTHAEMIA
     Dosage: 1.5 MG, 3X/DAY:TID, ORAL
     Route: 048
     Dates: start: 20040610, end: 20040806

REACTIONS (4)
  - BONE PAIN [None]
  - CHEST PAIN [None]
  - PALPITATIONS [None]
  - VERTIGO [None]
